FAERS Safety Report 6158689-5 (Version None)
Quarter: 2009Q2

REPORT INFORMATION
  Report Type: 
  Country: None (occurrence: None)
  Receive Date: 20090417
  Receipt Date: 20090410
  Transmission Date: 20091009
  Serious: Yes (Disabling)
  Sender: FDA-Public Use
  Company Number: A0766112A

PATIENT
  Age: 31 Year
  Sex: Male
  Weight: 81.4 kg

DRUGS (5)
  1. TREXIMET [Suspect]
     Indication: MIGRAINE
     Dosage: 1TAB SINGLE DOSE
     Route: 048
     Dates: start: 20090129
  2. NASONEX [Concomitant]
     Route: 045
     Dates: start: 20070102
  3. ASTELIN [Concomitant]
     Route: 045
     Dates: start: 20070116
  4. CLARINEX [Concomitant]
     Route: 048
     Dates: start: 20070102
  5. PATANOL [Concomitant]
     Dates: start: 20070102

REACTIONS (8)
  - AGEUSIA [None]
  - DIZZINESS [None]
  - DYSARTHRIA [None]
  - LETHARGY [None]
  - NAUSEA [None]
  - PAIN IN EXTREMITY [None]
  - PARAESTHESIA [None]
  - SYNCOPE [None]
